FAERS Safety Report 21681241 (Version 1)
Quarter: 2022Q4

REPORT INFORMATION
  Report Type: Report from Study
  Country: DE (occurrence: DE)
  Receive Date: 20221205
  Receipt Date: 20221205
  Transmission Date: 20230112
  Serious: Yes (Other)
  Sender: FDA-Public Use
  Company Number: DE-BRISTOL-MYERS SQUIBB COMPANY-2022-142565

PATIENT
  Age: 85 Year
  Sex: Male

DRUGS (1)
  1. REVLIMID [Suspect]
     Active Substance: LENALIDOMIDE
     Indication: Plasma cell myeloma
     Dosage: LINE OF TREATMENT: LINE 1
     Route: 065
     Dates: start: 20191015, end: 20220824

REACTIONS (1)
  - Second primary malignancy [Unknown]

NARRATIVE: CASE EVENT DATE: 20211215
